FAERS Safety Report 4465352-5 (Version None)
Quarter: 2004Q3

REPORT INFORMATION
  Report Type: 
  Country: None (occurrence: None)
  Receive Date: 20040930
  Receipt Date: 20040916
  Transmission Date: 20050211
  Serious: Yes (Death, Hospitalization, Other)
  Sender: FDA-Public Use
  Company Number: RU-2004-032182

PATIENT
  Age: 42 Year
  Sex: Female

DRUGS (11)
  1. FLUDARA [Suspect]
     Indication: CHRONIC LYMPHOCYTIC LEUKAEMIA
     Dosage: SEE IMAGE
     Route: 042
     Dates: start: 20021215, end: 20021217
  2. FLUDARA [Suspect]
     Indication: CHRONIC LYMPHOCYTIC LEUKAEMIA
     Dosage: SEE IMAGE
     Route: 042
     Dates: start: 20030127, end: 20030128
  3. CYCLOPHOSPHAMIDE [Suspect]
     Indication: CHRONIC LYMPHOCYTIC LEUKAEMIA
     Dosage: SEE IMAGE
     Route: 042
     Dates: start: 20021215, end: 20021217
  4. CYCLOPHOSPHAMIDE [Suspect]
     Indication: CHRONIC LYMPHOCYTIC LEUKAEMIA
     Dosage: SEE IMAGE
     Route: 042
     Dates: start: 20030127, end: 20030128
  5. CEFTAZIDIME SODIUM [Concomitant]
  6. AMIKACIN [Concomitant]
  7. ITRACONAZOLE [Concomitant]
  8. ACYCLOVIR [Concomitant]
  9. EPOETIN ALFA (EPOETIN ALFA) [Concomitant]
  10. NYSTATIN [Concomitant]
  11. SULFAMETHOXAZOLE + TRIMETHOPRIM [Concomitant]

REACTIONS (10)
  - CANDIDIASIS [None]
  - CHRONIC LYMPHOCYTIC LEUKAEMIA [None]
  - HAEMORRHAGIC DISORDER [None]
  - LOBAR PNEUMONIA [None]
  - LYMPHOCYTE PERCENTAGE INCREASED [None]
  - MALIGNANT NEOPLASM PROGRESSION [None]
  - PURPURA [None]
  - PYREXIA [None]
  - RED BLOOD CELL COUNT DECREASED [None]
  - THROMBOCYTOPENIA [None]
